FAERS Safety Report 6955426-9 (Version None)
Quarter: 2010Q3

REPORT INFORMATION
  Report Type: 
  Country: None (occurrence: None)
  Receive Date: 20100830
  Receipt Date: 20100823
  Transmission Date: 20110219
  Serious: Yes (Other)
  Sender: FDA-Public Use
  Company Number: US-AMGEN-KDC413070

PATIENT
  Sex: Female

DRUGS (5)
  1. DENOSUMAB [Suspect]
     Indication: OSTEOPOROSIS POSTMENOPAUSAL
     Route: 058
     Dates: start: 20080414
  2. ASCORBIC ACID [Concomitant]
     Dates: start: 19700101
  3. MULTI-VITAMINS [Concomitant]
     Route: 048
     Dates: start: 19960101
  4. TYLENOL-500 [Concomitant]
     Route: 048
     Dates: start: 20070102
  5. CALCIUM WITH VITAMIN D [Concomitant]
     Dates: start: 20050504

REACTIONS (1)
  - OSTEONECROSIS [None]
